FAERS Safety Report 24531583 (Version 1)
Quarter: 2024Q4

REPORT INFORMATION
  Report Type: Spontaneous
  Country: US (occurrence: US)
  Receive Date: 20241022
  Receipt Date: 20241022
  Transmission Date: 20250115
  Serious: No
  Sender: ROCHE
  Company Number: US-ROCHE-3530964

PATIENT
  Sex: Female
  Weight: 63.5 kg

DRUGS (10)
  1. PULMOZYME [Suspect]
     Active Substance: DORNASE ALFA
     Indication: Cystic fibrosis
     Dosage: A VIAL IN THE MORNING AND A VIAL AT NIGHT: ONGOING: NO
     Route: 065
  2. TRIKAFTA [Suspect]
     Active Substance: ELEXACAFTOR\IVACAFTOR\TEZACAFTOR
     Indication: Cystic fibrosis
     Route: 065
  3. PREDNISONE [Suspect]
     Active Substance: PREDNISONE
     Indication: Cystic fibrosis
     Route: 065
  4. PREDNISONE [Suspect]
     Active Substance: PREDNISONE
     Indication: Osteoporosis
     Route: 065
  5. PREDNISONE [Suspect]
     Active Substance: PREDNISONE
     Indication: Autoimmune disorder
  6. PULMICORT TURBUHALER [Concomitant]
     Active Substance: BUDESONIDE
     Indication: Cystic fibrosis
  7. INSULIN NOS [Concomitant]
     Active Substance: INSULIN NOS
  8. FLONASE [Concomitant]
     Active Substance: FLUTICASONE PROPIONATE
  9. ERGOCALCIFEROL [Concomitant]
     Active Substance: ERGOCALCIFEROL
  10. ALBUTEROL [Concomitant]
     Active Substance: ALBUTEROL
     Indication: Cystic fibrosis

REACTIONS (3)
  - Osteoporosis [Not Recovered/Not Resolved]
  - Autoimmune disorder [Unknown]
  - Developmental hip dysplasia [Not Recovered/Not Resolved]
